FAERS Safety Report 4990619-1 (Version None)
Quarter: 2006Q2

REPORT INFORMATION
  Report Type: 
  Country: None (occurrence: None)
  Receive Date: 20060427
  Receipt Date: 20060420
  Transmission Date: 20061013
  Serious: Yes (Hospitalization)
  Sender: FDA-Public Use
  Company Number: 007240

PATIENT
  Age: 54 Year
  Sex: Male
  Weight: 79.4 kg

DRUGS (10)
  1. CLARAVIS [Suspect]
     Indication: PITYRIASIS RUBRA PILARIS
     Dosage: 1 CAPS., BID, ORAL
     Route: 048
     Dates: start: 20060216, end: 20060420
  2. ZOLOFT [Suspect]
     Dosage: 200 MG, ORAL
     Route: 048
  3. LOPID [Concomitant]
  4. DOPVAN (VALSARTAN) [Concomitant]
  5. STARLIX [Concomitant]
  6. AVANDIA [Concomitant]
  7. SYNTHROID [Concomitant]
  8. CRESTOR [Concomitant]
  9. ASPIRIN [Concomitant]
  10. ASCORBIC ACID [Concomitant]

REACTIONS (2)
  - DEPRESSION [None]
  - SUICIDAL IDEATION [None]
